FAERS Safety Report 11634177 (Version 1)
Quarter: 2015Q4

REPORT INFORMATION
  Report Type: Spontaneous
  Country: HR (occurrence: HR)
  Receive Date: 20151015
  Receipt Date: 20151015
  Transmission Date: 20160304
  Serious: Yes (Other)
  Sender: FDA-Public Use
  Company Number: HR-ASTRAZENECA-2015SE96825

PATIENT
  Age: 417 Month
  Sex: Female
  Weight: 65 kg

DRUGS (4)
  1. PORTALAC [Interacting]
     Active Substance: LACTULOSE
     Indication: DEPRESSION
     Route: 048
     Dates: start: 201507
  2. CONTROLOC [Concomitant]
     Active Substance: PANTOPRAZOLE SODIUM
     Indication: GASTRODUODENITIS
     Route: 048
     Dates: start: 2012
  3. ZOMIG [Suspect]
     Active Substance: ZOLMITRIPTAN
     Indication: HEADACHE
     Route: 048
     Dates: start: 200503
  4. CONCOR COR [Concomitant]
     Active Substance: BISOPROLOL FUMARATE
     Indication: ESSENTIAL HYPERTENSION
     Route: 048
     Dates: start: 2013

REACTIONS (2)
  - Drug interaction [Unknown]
  - Serotonin syndrome [Not Recovered/Not Resolved]

NARRATIVE: CASE EVENT DATE: 201509
